FAERS Safety Report 16223698 (Version 1)
Quarter: 2019Q2

REPORT INFORMATION
  Report Type: Spontaneous
  Country: US (occurrence: US)
  Receive Date: 20190422
  Receipt Date: 20190422
  Transmission Date: 20190711
  Serious: No
  Sender: FDA-Public Use
  Company Number: US-009507513-1904USA004686

PATIENT
  Age: 64 Year
  Sex: Male

DRUGS (3)
  1. CYCLOBENZAPRINE HYDROCHLORIDE. [Concomitant]
     Active Substance: CYCLOBENZAPRINE HYDROCHLORIDE
  2. BELSOMRA [Suspect]
     Active Substance: SUVOREXANT
     Indication: INSOMNIA
     Dosage: 2 X 20MG TABLETS NIGHTLY
     Route: 048
     Dates: start: 2019, end: 20190325
  3. BELSOMRA [Suspect]
     Active Substance: SUVOREXANT
     Dosage: 20MG TABLETS NIGHTLY
     Route: 048
     Dates: start: 20190108, end: 2019

REACTIONS (2)
  - Drug ineffective [Not Recovered/Not Resolved]
  - Insomnia [Not Recovered/Not Resolved]

NARRATIVE: CASE EVENT DATE: 2019
